FAERS Safety Report 13745083 (Version 1)
Quarter: 2017Q3

REPORT INFORMATION
  Report Type: Report from Study
  Country: GB (occurrence: GB)
  Receive Date: 20170712
  Receipt Date: 20170712
  Transmission Date: 20171127
  Serious: Yes (Death)
  Sender: FDA-Public Use
  Company Number: GB-AMGEN-GBRCT2017104823

PATIENT
  Sex: Male

DRUGS (3)
  1. FLUORIDE [Concomitant]
     Active Substance: SODIUM FLUORIDE
     Dosage: 125 MBQ, UNK
     Route: 042
     Dates: start: 20160728, end: 20160728
  2. ALENDRONIC ACID [Concomitant]
     Active Substance: ALENDRONIC ACID
     Dosage: 70 MG, QWK
     Route: 048
     Dates: start: 20151130, end: 20160929
  3. DENOSUMAB [Suspect]
     Active Substance: DENOSUMAB
     Indication: OSTEOPOROSIS
     Route: 065

REACTIONS (1)
  - Aortic stenosis [Fatal]

NARRATIVE: CASE EVENT DATE: 20170315
